FAERS Safety Report 8720832 (Version 2)
Quarter: 2013Q4

REPORT INFORMATION
  Report Type: Spontaneous
  Country: US (occurrence: US)
  Receive Date: 20120813
  Receipt Date: 20131031
  Transmission Date: 20140711
  Serious: No
  Sender: FDA-Public Use
  Company Number: US-009507513-2012SP024095

PATIENT
  Sex: Female

DRUGS (1)
  1. A+D MEDICATED OINTMENT [Suspect]
     Indication: DERMATITIS DIAPER
     Dosage: UNK UNK, UNKNOWN
     Route: 061

REACTIONS (3)
  - Skin exfoliation [Unknown]
  - Chemical burn of skin [Unknown]
  - Rash [Recovered/Resolved]
